FAERS Safety Report 15438596 (Version 2)
Quarter: 2018Q4

REPORT INFORMATION
  Report Type: Spontaneous
  Country: BR (occurrence: BR)
  Receive Date: 20180928
  Receipt Date: 20181012
  Transmission Date: 20190204
  Serious: No
  Sender: FDA-Public Use
  Company Number: BR-009507513-1809BRA009685

PATIENT
  Sex: Female
  Weight: 70 kg

DRUGS (5)
  1. MODURETIC 5-50 [Suspect]
     Active Substance: AMILORIDE HYDROCHLORIDE\HYDROCHLOROTHIAZIDE
     Indication: BLOOD PRESSURE ABNORMAL
     Dosage: 1 TABLET (25MG/2.5MG), QD
     Route: 048
     Dates: start: 2006
  2. PROPRANOLOL [Concomitant]
     Active Substance: PROPRANOLOL HYDROCHLORIDE
     Indication: ARRHYTHMIA
     Dosage: 40 MG, QAM
     Route: 048
  3. LOSARTAN POTASSIUM. [Suspect]
     Active Substance: LOSARTAN POTASSIUM
     Indication: BLOOD PRESSURE ABNORMAL
     Dosage: 50 MG, QAM
     Route: 048
     Dates: start: 2012
  4. FRONTAL [Concomitant]
     Active Substance: ALPRAZOLAM
     Indication: SLEEP DISORDER
     Dosage: 0.25 MG (1 TABLET), AT NIGHT (HS)
     Route: 048
  5. FRONTAL [Concomitant]
     Active Substance: ALPRAZOLAM
     Indication: DEPRESSION

REACTIONS (5)
  - Product blister packaging issue [Unknown]
  - Blood pressure increased [Recovered/Resolved]
  - Poor quality product administered [Unknown]
  - Product physical issue [Unknown]
  - Peripheral swelling [Recovered/Resolved]
